FAERS Safety Report 14933489 (Version 2)
Quarter: 2018Q2

REPORT INFORMATION
  Report Type: Spontaneous
  Country: JP (occurrence: JP)
  Receive Date: 20180524
  Receipt Date: 20180525
  Transmission Date: 20180711
  Serious: Yes (Hospitalization)
  Sender: FDA-Public Use
  Company Number: PHJP2018JP011314

PATIENT
  Age: 77 Year
  Sex: Female

DRUGS (1)
  1. RIVASTACH [Suspect]
     Active Substance: RIVASTIGMINE
     Indication: DEMENTIA ALZHEIMER^S TYPE
     Dosage: 2/3 OF A 9MG RIVASTACH PATCH
     Route: 062

REACTIONS (3)
  - Tuberculosis [Unknown]
  - Respiratory tract infection [Unknown]
  - Wrong technique in product usage process [Unknown]
